FAERS Safety Report 20110734 (Version 1)
Quarter: 2021Q4

REPORT INFORMATION
  Report Type: Spontaneous
  Country: US (occurrence: US)
  Receive Date: 20211124
  Receipt Date: 20211124
  Transmission Date: 20220303
  Serious: No
  Sender: FDA-Public Use
  Company Number: US-JNJFOC-20211140149

PATIENT
  Age: 65 Year
  Sex: Female
  Weight: 40.860 kg

DRUGS (7)
  1. SPRAVATO [Suspect]
     Active Substance: ESKETAMINE
     Indication: Depression
     Route: 065
     Dates: start: 20211102
  2. BUPROPION [Concomitant]
     Active Substance: BUPROPION
  3. LEVOTHYROXINE [Concomitant]
     Active Substance: LEVOTHYROXINE
  4. ASPIRIN [Concomitant]
     Active Substance: ASPIRIN
  5. VITAMIN E-400 [Concomitant]
  6. ERGOCALCIFEROL [Concomitant]
     Active Substance: ERGOCALCIFEROL
  7. CRINONE [Concomitant]
     Active Substance: PROGESTERONE

REACTIONS (4)
  - Dissociation [Not Recovered/Not Resolved]
  - Nausea [Recovered/Resolved]
  - Vomiting [Recovered/Resolved]
  - Drug intolerance [Recovered/Resolved]

NARRATIVE: CASE EVENT DATE: 20211101
